FAERS Safety Report 4521614-4 (Version None)
Quarter: 2004Q4

REPORT INFORMATION
  Report Type: 
  Country: None (occurrence: None)
  Receive Date: 20041209
  Receipt Date: 20041130
  Transmission Date: 20050328
  Serious: Yes (Other)
  Sender: FDA-Public Use
  Company Number: US-JNJFOC-20041200172

PATIENT
  Age: 19 Year
  Sex: Male

DRUGS (3)
  1. REMICADE [Suspect]
     Indication: CROHN'S DISEASE
     Route: 042
  2. PREDNISONE [Concomitant]
  3. ASACOL [Concomitant]

REACTIONS (3)
  - BREAST DISORDER MALE [None]
  - FIBROADENOMA OF BREAST [None]
  - WEIGHT INCREASED [None]
